FAERS Safety Report 19657307 (Version 1)
Quarter: 2021Q3

REPORT INFORMATION
  Report Type: Report from Study
  Country: US (occurrence: US)
  Receive Date: 20210804
  Receipt Date: 20210804
  Transmission Date: 20211014
  Serious: Yes (Hospitalization)
  Sender: FDA-Public Use
  Company Number: NVSC2021US172872

PATIENT
  Age: 8 Year
  Sex: Male

DRUGS (1)
  1. ILARIS [Suspect]
     Active Substance: CANAKINUMAB
     Indication: PYREXIA
     Dosage: 100 MG, QMO
     Route: 058
     Dates: start: 20210114

REACTIONS (2)
  - Hepatic cyst [Unknown]
  - Illness [Unknown]

NARRATIVE: CASE EVENT DATE: 20210725
